FAERS Safety Report 4504935-0 (Version None)
Quarter: 2004Q4

REPORT INFORMATION
  Report Type: 
  Country: None (occurrence: None)
  Receive Date: 20041020
  Receipt Date: 20040719
  Transmission Date: 20050328
  Serious: No
  Sender: FDA-Public Use
  Company Number: 2004-07-1186

PATIENT
  Age: 10 Year
  Sex: Female
  Weight: 69.8539 kg

DRUGS (9)
  1. CLARINEX [Suspect]
     Indication: HYPERSENSITIVITY
     Dosage: 5 MG ORAL
     Route: 048
     Dates: start: 20040427, end: 20040509
  2. CLARITIN [Concomitant]
  3. CYCLOBENZAPRINE [Concomitant]
  4. BECONASE AQUA [Concomitant]
  5. PRILOSEC [Concomitant]
  6. EXTRA STRENGTH TYLENOL [Concomitant]
  7. ZINC [Concomitant]
  8. CALCIUM [Concomitant]
  9. FIBER DIETARY [Concomitant]

REACTIONS (3)
  - FIBROMYALGIA [None]
  - MUSCULOSKELETAL STIFFNESS [None]
  - PAIN IN EXTREMITY [None]
